FAERS Safety Report 16455848 (Version 3)
Quarter: 2019Q3

REPORT INFORMATION
  Report Type: Spontaneous
  Country: US (occurrence: US)
  Receive Date: 20190620
  Receipt Date: 20190826
  Transmission Date: 20191004
  Serious: Yes (Life-Threatening, Hospitalization, Other)
  Sender: FDA-Public Use
  Company Number: US-AUROBINDO-AUR-APL-2019-034408

PATIENT

DRUGS (4)
  1. TRIMETHOPRIM+SULFAMETHOXAZOLE [Suspect]
     Active Substance: SULFAMETHOXAZOLE\TRIMETHOPRIM
     Indication: ACNE
     Dosage: UNK
     Route: 065
  2. CLINDAMYCIN. [Concomitant]
     Active Substance: CLINDAMYCIN
     Indication: PRODUCT USED FOR UNKNOWN INDICATION
     Dosage: UNK
     Route: 061
  3. TAZAROTENE. [Concomitant]
     Active Substance: TAZAROTENE
     Indication: PRODUCT USED FOR UNKNOWN INDICATION
     Dosage: UNK
     Route: 061
  4. BENZOYL PEROXIDE. [Concomitant]
     Active Substance: BENZOYL PEROXIDE
     Indication: PRODUCT USED FOR UNKNOWN INDICATION
     Dosage: UNK
     Route: 061

REACTIONS (15)
  - Hypoxia [Unknown]
  - Cough [Unknown]
  - Acute respiratory distress syndrome [Unknown]
  - Headache [Unknown]
  - Pharyngitis [Unknown]
  - Pyrexia [Unknown]
  - Pneumomediastinum [Unknown]
  - Eosinophilic pneumonia acute [Unknown]
  - Acute respiratory failure [Unknown]
  - Pleural effusion [Unknown]
  - Condition aggravated [Unknown]
  - Respiratory distress [Unknown]
  - Chest pain [Unknown]
  - Interstitial lung disease [Unknown]
  - Pneumothorax [Unknown]
